FAERS Safety Report 8542839-7 (Version None)
Quarter: 2012Q3

REPORT INFORMATION
  Report Type: 
  Country: None (occurrence: None)
  Receive Date: 20120727
  Receipt Date: 20120719
  Transmission Date: 20120928
  Serious: No
  Sender: FDA-Public Use
  Company Number: US-BIOGENIDEC-2012BI026386

PATIENT
  Age: 65 Year
  Sex: Female

DRUGS (3)
  1. AVONEX [Suspect]
     Route: 030
     Dates: start: 20120704
  2. AVONEX [Suspect]
     Indication: MULTIPLE SCLEROSIS
     Route: 030
     Dates: start: 20071001
  3. AVONEX [Suspect]
     Route: 030
     Dates: start: 20080301, end: 20120610

REACTIONS (2)
  - INJECTION SITE RASH [None]
  - INCORRECT ROUTE OF DRUG ADMINISTRATION [None]
